FAERS Safety Report 6524800-7 (Version None)
Quarter: 2009Q4

REPORT INFORMATION
  Report Type: 
  Country: None (occurrence: None)
  Receive Date: 20091224
  Receipt Date: 20091210
  Transmission Date: 20100525
  Serious: Yes (Other)
  Sender: FDA-Public Use
  Company Number: 2009-00087

PATIENT
  Age: 59 Year
  Sex: Male

DRUGS (3)
  1. LISINOPRIL [Suspect]
  2. SIMVASTATIN [Suspect]
  3. INSULIN SOURCE UNSPECIFIED [Suspect]

REACTIONS (2)
  - AGGRESSION [None]
  - BLOOD GLUCOSE DECREASED [None]
